FAERS Safety Report 8949647 (Version 2)
Quarter: 2013Q1

REPORT INFORMATION
  Report Type: Spontaneous
  Country: US (occurrence: US)
  Receive Date: 20121206
  Receipt Date: 20130315
  Transmission Date: 20140127
  Serious: Yes (Hospitalization, Other)
  Sender: FDA-Public Use
  Company Number: US-PFIZER INC-2012306992

PATIENT
  Age: 77 Year
  Sex: Female
  Weight: 92.52 kg

DRUGS (15)
  1. LYRICA [Suspect]
     Indication: PERIPHERAL NERVE INJURY
     Dosage: 150 MG, 2X/DAY
     Dates: start: 2009
  2. NEURONTIN [Suspect]
     Indication: PERIPHERAL NERVE INJURY
     Dosage: 300 MG, 3X/DAY
     Dates: start: 2002
  3. NEURONTIN [Suspect]
     Dosage: 800 MG, 3X/DAY
     Dates: start: 2001
  4. CELEBREX [Suspect]
     Indication: ARTHRITIS
     Dosage: 200 MG, 1X/DAY
     Dates: start: 2001
  5. LISINOPRIL [Suspect]
     Indication: BLOOD PRESSURE ABNORMAL
     Dosage: 20 MG, 1X/DAY
  6. MAXZIDE [Suspect]
     Indication: BLOOD PRESSURE ABNORMAL
     Dosage: 75/50 MG DAILY
  7. CALCIUM [Concomitant]
     Dosage: 10 MG, 1X/DAY
  8. SINEQUAN [Concomitant]
     Dosage: 100 MG, 1X/DAY
  9. ZOCOR [Concomitant]
     Indication: BLOOD CHOLESTEROL ABNORMAL
     Dosage: 20 MG, 1X/DAY
  10. VITAMIN D3 [Concomitant]
     Dosage: 400 MG, 1X/DAY
  11. FLUOXETINE [Concomitant]
     Dosage: 10 MG, 1X/DAY
  12. VESICARE [Concomitant]
     Dosage: 5 MG, 1X/DAY
  13. SINGULAIR [Concomitant]
     Indication: CHRONIC OBSTRUCTIVE PULMONARY DISEASE
     Dosage: 10 MG, 1X/DAY
  14. SPIRIVA [Concomitant]
     Indication: CHRONIC OBSTRUCTIVE PULMONARY DISEASE
     Dosage: UNK, DAILY
  15. ADVAIR DISKUS [Concomitant]
     Indication: CHRONIC OBSTRUCTIVE PULMONARY DISEASE
     Dosage: UNK, 2X/DAY

REACTIONS (10)
  - Gait disturbance [Recovered/Resolved]
  - Fall [Unknown]
  - Intervertebral disc protrusion [Unknown]
  - Pneumonia [Recovering/Resolving]
  - Cystitis [Unknown]
  - Hypotension [Recovered/Resolved]
  - Dehydration [Unknown]
  - Pain in extremity [Unknown]
  - Back pain [Unknown]
  - Arthralgia [Unknown]
